FAERS Safety Report 17051322 (Version 1)
Quarter: 2019Q4

REPORT INFORMATION
  Report Type: Report from Study
  Country: DE (occurrence: DE)
  Receive Date: 20191120
  Receipt Date: 20191120
  Transmission Date: 20200122
  Serious: Yes (Hospitalization)
  Sender: FDA-Public Use
  Company Number: DE-BEH-2015053992

PATIENT
  Age: 69 Year
  Sex: Male
  Weight: 88 kg

DRUGS (4)
  1. CLEMASTIN [Concomitant]
     Active Substance: CLEMASTINE
     Dosage: 2 MILLIGRAM, QD
     Route: 042
     Dates: start: 20140303, end: 20140303
  2. CORTISONE [Concomitant]
     Active Substance: CORTISONE
     Dosage: 250 MILLIGRAM, QD
     Route: 042
     Dates: start: 20140303, end: 20140303
  3. BERINERT [Suspect]
     Active Substance: HUMAN C1-ESTERASE INHIBITOR
     Indication: ANGIOEDEMA
     Dosage: UNK UNK, SINGLE, 20 IU/KG ROUNDED TO NEXT 500 IU VIAL
     Route: 042
     Dates: start: 20140303
  4. BERINERT [Suspect]
     Active Substance: HUMAN C1-ESTERASE INHIBITOR
     Indication: ANGIOEDEMA
     Dosage: UNK UNK, SINGLE, 20 IU/KG ROUNDED TO NEXT 500 IU VIAL
     Route: 042
     Dates: start: 20140303

REACTIONS (3)
  - Syncope [Recovered/Resolved]
  - No adverse event [Unknown]
  - Product use in unapproved indication [Unknown]

NARRATIVE: CASE EVENT DATE: 20140305
